FAERS Safety Report 25005275 (Version 3)
Quarter: 2025Q3

REPORT INFORMATION
  Report Type: Spontaneous
  Country: EU (occurrence: EU)
  Receive Date: 20250224
  Receipt Date: 20250809
  Transmission Date: 20251021
  Serious: Yes (Death, Other)
  Sender: ALEXION PHARMACEUTICALS
  Company Number: EU-ASTRAZENECA-202502GLO014970ES

PATIENT
  Sex: Male

DRUGS (4)
  1. QUETIAPINE FUMARATE [Suspect]
     Active Substance: QUETIAPINE FUMARATE
     Route: 065
  2. PROPOFOL [Suspect]
     Active Substance: PROPOFOL
     Route: 065
  3. VENLAFAXINE [Suspect]
     Active Substance: VENLAFAXINE HYDROCHLORIDE
     Route: 065
  4. FENTANYL [Suspect]
     Active Substance: FENTANYL
     Route: 065

REACTIONS (4)
  - Overdose [Fatal]
  - Suicide attempt [Unknown]
  - Acute pulmonary oedema [Unknown]
  - Intentional product misuse [Unknown]
